FAERS Safety Report 23772542 (Version 2)
Quarter: 2024Q2

REPORT INFORMATION
  Report Type: Spontaneous
  Country: KR (occurrence: KR)
  Receive Date: 20240423
  Receipt Date: 20240501
  Transmission Date: 20240716
  Serious: Yes (Hospitalization)
  Sender: FDA-Public Use
  Company Number: KR-PFIZER INC-PV202400042854

PATIENT
  Age: 9 Year
  Sex: Male

DRUGS (1)
  1. GENOTROPIN [Suspect]
     Active Substance: SOMATROPIN
     Indication: Small for dates baby
     Dosage: 3 IU, 6 TIMES WEEKLY
     Dates: start: 2023

REACTIONS (4)
  - Headache [Recovered/Resolved]
  - Product prescribing error [Unknown]
  - Off label use [Unknown]
  - Device issue [Unknown]
